FAERS Safety Report 7184941-0 (Version None)
Quarter: 2010Q4

REPORT INFORMATION
  Report Type: 
  Country: None (occurrence: None)
  Receive Date: 20101222
  Receipt Date: 20101201
  Transmission Date: 20110411
  Serious: Yes (Other)
  Sender: FDA-Public Use
  Company Number: US-ABBOTT-10P-163-0689808-00

PATIENT
  Sex: Male
  Weight: 82.628 kg

DRUGS (4)
  1. LUPRON DEPOT [Suspect]
     Indication: PROSTATE CANCER
     Dates: start: 20080101
  2. SIMVASTATIN [Concomitant]
     Indication: BLOOD CHOLESTEROL ABNORMAL
  3. METOPROLOL SUCCINATE [Concomitant]
     Indication: HYPERTENSION
  4. CHLORTHALIDONE [Concomitant]
     Indication: DIURETIC THERAPY

REACTIONS (5)
  - ASTHENIA [None]
  - CEREBROVASCULAR ACCIDENT [None]
  - DIZZINESS [None]
  - INJECTION SITE REACTION [None]
  - WALKING AID USER [None]
